FAERS Safety Report 12380232 (Version 1)
Quarter: 2016Q2

REPORT INFORMATION
  Report Type: Other
  Country: TR (occurrence: TR)
  Receive Date: 20160518
  Receipt Date: 20160518
  Transmission Date: 20160815
  Serious: Yes (Other)
  Sender: FDA-Public Use
  Company Number: TR-LUPIN PHARMACEUTICALS INC.-2015-04435

PATIENT
  Age: 34 Year
  Sex: Male

DRUGS (9)
  1. PREGABALIN. [Suspect]
     Active Substance: PREGABALIN
     Indication: ANXIETY
     Route: 065
  2. QUETIAPINE. [Suspect]
     Active Substance: QUETIAPINE
     Indication: PRODUCT USED FOR UNKNOWN INDICATION
     Dosage: 50 MG
     Route: 065
  3. HYDROXYZINE [Concomitant]
     Active Substance: HYDROXYZINE\HYDROXYZINE HYDROCHLORIDE
     Indication: PRODUCT USED FOR UNKNOWN INDICATION
     Route: 065
  4. PAROXETINE. [Concomitant]
     Active Substance: PAROXETINE
     Indication: PRODUCT USED FOR UNKNOWN INDICATION
     Route: 065
  5. PREGABALIN. [Suspect]
     Active Substance: PREGABALIN
     Dosage: TAPERING DOSE BY 150 MG
     Route: 065
  6. QUETIAPINE. [Suspect]
     Active Substance: QUETIAPINE
     Dosage: 37.5 MG
     Route: 065
  7. BUPROPION. [Concomitant]
     Active Substance: BUPROPION
     Indication: PRODUCT USED FOR UNKNOWN INDICATION
     Dosage: 150 MG (TO BE INCREASED TO 300 MG 1 WEEK LATER)
     Route: 065
  8. QUETIAPINE. [Suspect]
     Active Substance: QUETIAPINE
     Dosage: 25 MG
     Route: 065
  9. PREGABALIN. [Suspect]
     Active Substance: PREGABALIN
     Dosage: INCREASED DOSE TO 300 MG
     Route: 065

REACTIONS (5)
  - Drug abuse [Unknown]
  - Drug dependence [Unknown]
  - Drug withdrawal syndrome [Unknown]
  - Somnolence [Unknown]
  - Affective disorder [Unknown]
